FAERS Safety Report 7539966-X (Version None)
Quarter: 2011Q2

REPORT INFORMATION
  Report Type: 
  Country: None (occurrence: None)
  Receive Date: 20110603
  Receipt Date: 20110426
  Transmission Date: 20111010
  Serious: Yes (Hospitalization)
  Sender: FDA-Public Use
  Company Number: 2011SP000691

PATIENT
  Age: 11 Year
  Sex: Female

DRUGS (5)
  1. CLONIDINE [Concomitant]
  2. LATUDA [Suspect]
     Indication: OPPOSITIONAL DEFIANT DISORDER
     Dosage: 40, 80 MG, QD, ORAL
     Route: 048
     Dates: start: 20110216, end: 20110219
  3. LATUDA [Suspect]
     Indication: AFFECTIVE DISORDER
     Dosage: 40, 80 MG, QD, ORAL
     Route: 048
     Dates: start: 20110216, end: 20110219
  4. LATUDA [Suspect]
     Indication: OPPOSITIONAL DEFIANT DISORDER
     Dosage: 40, 80 MG, QD, ORAL
     Route: 048
     Dates: start: 20110220, end: 20110226
  5. LATUDA [Suspect]
     Indication: AFFECTIVE DISORDER
     Dosage: 40, 80 MG, QD, ORAL
     Route: 048
     Dates: start: 20110220, end: 20110226

REACTIONS (2)
  - SUICIDAL IDEATION [None]
  - DRUG INEFFECTIVE [None]
